FAERS Safety Report 20854116 (Version 2)
Quarter: 2022Q3

REPORT INFORMATION
  Report Type: Report from Study
  Country: CA (occurrence: CA)
  Receive Date: 20220520
  Receipt Date: 20220713
  Transmission Date: 20221026
  Serious: Yes (Hospitalization)
  Sender: FDA-Public Use
  Company Number: CA-BAUSCH-BL-2022-011882

PATIENT
  Age: 47 Year
  Sex: Female
  Weight: 95.238 kg

DRUGS (2)
  1. CONTRAVE [Suspect]
     Active Substance: BUPROPION HYDROCHLORIDE\NALTREXONE HYDROCHLORIDE
     Indication: Weight control
     Dosage: 90/8MG
     Route: 048
     Dates: start: 20220309, end: 2022
  2. CONTRAVE [Suspect]
     Active Substance: BUPROPION HYDROCHLORIDE\NALTREXONE HYDROCHLORIDE
     Dosage: 90/8MG, 4 TABS/DAY
     Route: 048
     Dates: start: 2022, end: 202204

REACTIONS (5)
  - COVID-19 [Not Recovered/Not Resolved]
  - Fall [Not Recovered/Not Resolved]
  - Chest injury [Not Recovered/Not Resolved]
  - Nausea [Recovered/Resolved]
  - Feeling jittery [Recovered/Resolved]

NARRATIVE: CASE EVENT DATE: 20220301
